FAERS Safety Report 7409135-2 (Version None)
Quarter: 2011Q2

REPORT INFORMATION
  Report Type: 
  Country: None (occurrence: None)
  Receive Date: 20110412
  Receipt Date: 20110408
  Transmission Date: 20111010
  Serious: Yes (Other)
  Sender: FDA-Public Use
  Company Number: BR-ROCHE-763674

PATIENT
  Sex: Male

DRUGS (5)
  1. ASPIRIN [Concomitant]
     Indication: BLOOD CHOLESTEROL ABNORMAL
  2. ALCOHOL [Interacting]
     Route: 048
     Dates: start: 20110304, end: 20110304
  3. RIVOTRIL [Suspect]
     Indication: SEDATIVE THERAPY
     Dosage: HALF TAB IN MORNING AND HALF AT NIGHT
     Route: 048
     Dates: start: 20070101
  4. DOXAZOSIN [Concomitant]
     Indication: PROSTATIC DISORDER
     Dosage: DRUG REPORTED AS :DUOMO. FREQ: ONCE AT NIGHT
  5. LIPLESS [Concomitant]
     Indication: BLOOD CHOLESTEROL ABNORMAL

REACTIONS (8)
  - ALCOHOL INTERACTION [None]
  - LOSS OF CONSCIOUSNESS [None]
  - NASOPHARYNGITIS [None]
  - HYPOTENSION [None]
  - SYNCOPE [None]
  - ISCHAEMIA [None]
  - PALLOR [None]
  - MEMORY IMPAIRMENT [None]
